FAERS Safety Report 4816697-8 (Version None)
Quarter: 2005Q4

REPORT INFORMATION
  Report Type: 
  Country: None (occurrence: None)
  Receive Date: 20051028
  Receipt Date: 20051018
  Transmission Date: 20060501
  Serious: Yes (Hospitalization)
  Sender: FDA-Public Use
  Company Number: 2005BI013123

PATIENT
  Age: 51 Year
  Sex: Female

DRUGS (1)
  1. AVONEX [Suspect]
     Indication: MULTIPLE SCLEROSIS
     Dosage: IM
     Route: 030
     Dates: start: 19991212

REACTIONS (6)
  - ASTHENIA [None]
  - BALANCE DISORDER [None]
  - CERVIX CARCINOMA [None]
  - CONDITION AGGRAVATED [None]
  - FEELING ABNORMAL [None]
  - MULTIPLE SCLEROSIS [None]
